FAERS Safety Report 5552646-5 (Version None)
Quarter: 2007Q4

REPORT INFORMATION
  Report Type: 
  Country: None (occurrence: None)
  Receive Date: 20071210
  Receipt Date: 20071128
  Transmission Date: 20080405
  Serious: Yes (Life-Threatening, Hospitalization)
  Sender: FDA-Public Use
  Company Number: 6039492

PATIENT
  Age: 83 Year
  Sex: Male

DRUGS (6)
  1. CONCOR 5 (5 MG, TABLET) (BISOPROLOL FUMARATE) [Suspect]
     Indication: DRUG USE FOR UNKNOWN INDICATION
     Dosage: 5 MG (5 MG, 1 IN 1 D)
     Route: 048
  2. GLUCOPHAGE [Suspect]
     Indication: DRUG USE FOR UNKNOWN INDICATION
     Dosage: 1700 MG (850 MG,2 IN 1 D)
     Route: 048
     Dates: end: 20071026
  3. PRADIF (0,4 MG, CAPSULE) (TAMSULOSIN HYDROCHLORIDE) [Concomitant]
  4. EUGLUCON (5 MG, TABLET) (GLIBENCLAMIDE) [Suspect]
     Indication: DRUG USE FOR UNKNOWN INDICATION
     Dosage: 10 MG (5 MG,2 IN 1 D)
     Route: 048
     Dates: end: 20071026
  5. SOTALOL HCL [Suspect]
     Indication: DRUG USE FOR UNKNOWN INDICATION
     Dosage: 40 MG, (20, 2 IN 1 D)
     Route: 048
  6. MODURETIC 5-50 [Suspect]
     Indication: DRUG USE FOR UNKNOWN INDICATION
     Dosage: 1 DOSAGE FORMS (1 DOSAGE FORMS, 1 IN 1 D)
     Route: 048

REACTIONS (3)
  - HYPOGLYCAEMIC COMA [None]
  - ORAL INTAKE REDUCED [None]
  - PNEUMONITIS [None]
